FAERS Safety Report 7079749-0 (Version None)
Quarter: 2010Q4

REPORT INFORMATION
  Report Type: 
  Country: None (occurrence: None)
  Receive Date: 20101102
  Receipt Date: 20101028
  Transmission Date: 20110411
  Serious: Yes (Hospitalization)
  Sender: FDA-Public Use
  Company Number: US-B.I. PHARMACEUTICALS,INC./RIDGEFIELD-2010-BP-11735BP

PATIENT
  Sex: Female

DRUGS (4)
  1. COMBIVENT [Suspect]
     Indication: ASTHMA
     Route: 055
     Dates: start: 20020101, end: 20100927
  2. COMBIVENT [Suspect]
     Indication: CHRONIC OBSTRUCTIVE PULMONARY DISEASE
     Route: 055
     Dates: start: 20101014
  3. LISINOPRIL [Concomitant]
     Indication: HYPERTENSION
     Dosage: 12.5 MG
     Route: 048
  4. LYRICA [Concomitant]
     Indication: FIBROMYALGIA
     Dosage: 150 MG
     Route: 048

REACTIONS (4)
  - NAUSEA [None]
  - PANCREATIC DISORDER [None]
  - PANCREATITIS [None]
  - TYPE 2 DIABETES MELLITUS [None]
